FAERS Safety Report 10216044 (Version 1)
Quarter: 2014Q2

REPORT INFORMATION
  Report Type: Spontaneous
  Country: US (occurrence: None)
  Receive Date: 20140602
  Receipt Date: 20140602
  Transmission Date: 20141212
  Serious: Yes (Hospitalization, Other)
  Sender: FDA-Public Use
  Company Number: 2014-US-006559

PATIENT
  Age: 71 Year
  Sex: Male

DRUGS (1)
  1. XYREM (SODIUM OXYBATE) ORAL SOLUTION, 500MG/ML [Suspect]
     Indication: SOMNOLENCE
     Route: 048
     Dates: start: 200603

REACTIONS (5)
  - Transient ischaemic attack [None]
  - Blood glucose decreased [None]
  - Type 2 diabetes mellitus [None]
  - Hypertension [None]
  - Off label use [None]
